FAERS Safety Report 23020201 (Version 1)
Quarter: 2023Q4

REPORT INFORMATION
  Report Type: Spontaneous
  Country: US (occurrence: None)
  Receive Date: 20231002
  Receipt Date: 20231002
  Transmission Date: 20240110
  Serious: Yes (Death)
  Sender: FDA-Public Use
  Company Number: None

PATIENT
  Age: 40 Year
  Sex: Male
  Weight: 86.4 kg

DRUGS (2)
  1. HERBALS\MITRAGYNINE [Suspect]
     Active Substance: HERBALS\MITRAGYNINE
  2. DEVICE [Concomitant]
     Active Substance: DEVICE

REACTIONS (2)
  - Fall [None]
  - Brain death [None]

NARRATIVE: CASE EVENT DATE: 20230209
